FAERS Safety Report 8133535-9 (Version None)
Quarter: 2012Q1

REPORT INFORMATION
  Report Type: 
  Country: None (occurrence: None)
  Receive Date: 20120213
  Receipt Date: 20120208
  Transmission Date: 20120608
  Serious: Yes (Hospitalization, Congenital Anomaly)
  Sender: FDA-Public Use
  Company Number: GXKR2012DE000795

PATIENT

DRUGS (1)
  1. SULFAMETHOXAZOLE AND TRIMETHOPRIM [Suspect]
     Dosage: MATERNAL DOSE: 1600 [MG/D (2X800) ] / 320 [MG/D (2X160) ]
     Route: 064

REACTIONS (2)
  - CLEFT LIP AND PALATE [None]
  - FOETAL EXPOSURE DURING PREGNANCY [None]
